FAERS Safety Report 9717406 (Version 3)
Quarter: 2014Q3

REPORT INFORMATION
  Report Type: Spontaneous
  Country: US (occurrence: US)
  Receive Date: 20131127
  Receipt Date: 20140818
  Transmission Date: 20150326
  Serious: Yes (Other)
  Sender: FDA-Public Use
  Company Number: US-PFIZER INC-2013338105

PATIENT
  Age: 78 Year
  Sex: Female
  Weight: 65.76 kg

DRUGS (1)
  1. CELEBREX [Suspect]
     Active Substance: CELECOXIB
     Indication: OSTEOARTHRITIS
     Dosage: 200 MG, AS NEEDED

REACTIONS (3)
  - Thyroid cancer [Unknown]
  - Malaise [Unknown]
  - Breast cancer female [Unknown]

NARRATIVE: CASE EVENT DATE: 2013
